FAERS Safety Report 9729470 (Version 2)
Quarter: 2013Q4

REPORT INFORMATION
  Report Type: Spontaneous
  Country: US (occurrence: US)
  Receive Date: 20131204
  Receipt Date: 20131204
  Transmission Date: 20140711
  Serious: No
  Sender: FDA-Public Use
  Company Number: US-GILEAD-2009-0021205

PATIENT
  Sex: Male
  Weight: 92.99 kg

DRUGS (6)
  1. LETAIRIS [Suspect]
     Indication: PULMONARY ARTERIAL HYPERTENSION
     Route: 048
     Dates: start: 20090116
  2. ASPIRIN [Concomitant]
  3. LISINOPRIL/HCTZ [Concomitant]
  4. DOXAZOSIN [Concomitant]
  5. CENTRUM SILVER [Concomitant]
  6. TYLENOL ARTHRITIS [Concomitant]

REACTIONS (3)
  - Testicular oedema [Unknown]
  - Oedema peripheral [Unknown]
  - Swelling [Unknown]
